FAERS Safety Report 20062399 (Version 1)
Quarter: 2021Q4

REPORT INFORMATION
  Report Type: Spontaneous
  Country: HR (occurrence: HR)
  Receive Date: 20211112
  Receipt Date: 20211112
  Transmission Date: 20220303
  Serious: Yes (Other)
  Sender: FDA-Public Use
  Company Number: None

PATIENT
  Age: 41 Year
  Sex: Female
  Weight: 70 kg

DRUGS (1)
  1. INTERFERON BETA-1B [Suspect]
     Active Substance: INTERFERON BETA-1B
     Indication: Multiple sclerosis
     Dosage: UNK
     Route: 058
     Dates: start: 202003, end: 202109

REACTIONS (3)
  - Panniculitis [Recovered/Resolved]
  - Granuloma [Recovered/Resolved]
  - Injection site nodule [Recovered/Resolved]

NARRATIVE: CASE EVENT DATE: 20200301
